FAERS Safety Report 8590325-0 (Version None)
Quarter: 2012Q3

REPORT INFORMATION
  Report Type: 
  Country: None (occurrence: None)
  Receive Date: 20120813
  Receipt Date: 19900507
  Transmission Date: 20120928
  Serious: Yes (Hospitalization)
  Sender: FDA-Public Use
  Company Number: US-ROCHE-1100481

PATIENT
  Sex: Male

DRUGS (6)
  1. ACTIVASE [Suspect]
     Indication: ACUTE MYOCARDIAL INFARCTION
     Dates: start: 19891128
  2. TIGAN [Concomitant]
     Dosage: SUPPOS
  3. PERI-COLACE [Concomitant]
     Route: 048
  4. TYLENOL [Concomitant]
     Route: 048
  5. PERI-COLACE [Concomitant]
     Route: 048
  6. ACTIVASE [Suspect]
     Indication: ANGINA UNSTABLE
     Dosage: IVP OVER 1-2 MINS
     Dates: start: 19891128

REACTIONS (1)
  - CHEST DISCOMFORT [None]
